APPROVED DRUG PRODUCT: DICLOFENAC SODIUM
Active Ingredient: DICLOFENAC SODIUM
Strength: 1%
Dosage Form/Route: GEL;TOPICAL
Application: A208077 | Product #001
Applicant: AMNEAL PHARMACEUTICALS
Approved: Mar 18, 2016 | RLD: No | RS: No | Type: OTC